FAERS Safety Report 6459302-X (Version None)
Quarter: 2009Q4

REPORT INFORMATION
  Report Type: 
  Country: None (occurrence: None)
  Receive Date: 20091127
  Receipt Date: 20091116
  Transmission Date: 20100525
  Serious: Yes (Hospitalization)
  Sender: FDA-Public Use
  Company Number: BE-ELI_LILLY_AND_COMPANY-BE200911003786

PATIENT
  Sex: Male
  Weight: 69.5 kg

DRUGS (18)
  1. PEMETREXED [Suspect]
     Indication: NON-SMALL CELL LUNG CANCER
     Dosage: 500 MG/M2, DAY 1 EVERY 21 DAYS
     Route: 042
     Dates: start: 20091007
  2. CISPLATIN [Suspect]
     Indication: NON-SMALL CELL LUNG CANCER
     Dosage: 75 MG/M2, DAY 1 EVERY 21 DAYS
     Route: 042
     Dates: start: 20091007
  3. FOLIC ACID [Concomitant]
     Indication: PROPHYLAXIS
     Dates: start: 20090918
  4. VITAMIN B-12 [Concomitant]
     Indication: PROPHYLAXIS
     Dates: start: 20090918
  5. DEXAMETHASONE TAB [Concomitant]
     Indication: PROPHYLAXIS
     Dates: start: 20090918
  6. AMLODIPINE [Concomitant]
     Indication: PROPHYLAXIS
     Dates: start: 19940101
  7. LISINOPRIL [Concomitant]
     Indication: PROPHYLAXIS
     Dates: start: 19940101
  8. INDAPAMIDE [Concomitant]
     Indication: PROPHYLAXIS
     Dates: start: 19940101
  9. ATENOLOL [Concomitant]
     Indication: PROPHYLAXIS
     Dates: start: 20070101
  10. GLIQUIDONE [Concomitant]
     Indication: PROPHYLAXIS
     Dates: start: 20070101
  11. PAROXETINE HCL [Concomitant]
     Indication: PROPHYLAXIS
     Dates: start: 20091026
  12. TRAMADOL HCL [Concomitant]
     Indication: PROPHYLAXIS
     Dates: start: 20091026
  13. PARACETAMOL [Concomitant]
     Indication: PROPHYLAXIS
     Dates: start: 20091026
  14. METOCLOPRAMIDE [Concomitant]
     Indication: PROPHYLAXIS
     Dates: start: 20091026
  15. METHYLPREDNISOLONE [Concomitant]
     Indication: PROPHYLAXIS
     Dates: start: 20091026
  16. RANITIDINE [Concomitant]
     Indication: PROPHYLAXIS
     Dates: start: 20091026
  17. LACTULOSE [Concomitant]
     Indication: PROPHYLAXIS
     Dates: start: 20091026
  18. ALENDRONATE [Concomitant]
     Indication: PROPHYLAXIS
     Dates: start: 20091026

REACTIONS (2)
  - BLOOD UREA INCREASED [None]
  - URINARY RETENTION [None]
